FAERS Safety Report 9863408 (Version 4)
Quarter: 2014Q2

REPORT INFORMATION
  Report Type: Report from Study
  Country: JP (occurrence: JP)
  Receive Date: 20140203
  Receipt Date: 20140418
  Transmission Date: 20141212
  Serious: Yes (Other)
  Sender: FDA-Public Use
  Company Number: JP-SA-THYM-1003796

PATIENT
  Age: 60 Year
  Sex: Female
  Weight: 51 kg

DRUGS (15)
  1. THYMOGLOBULIN [Suspect]
     Indication: APLASTIC ANAEMIA
     Dosage: UNK
     Route: 042
     Dates: start: 20130117, end: 20130121
  2. SOLU-MEDROL [Concomitant]
     Indication: PROPHYLAXIS
     Dates: start: 20130117, end: 20130121
  3. PREDNISOLONE [Concomitant]
     Indication: PROPHYLAXIS
     Dates: start: 20130122, end: 20130312
  4. NEORAL [Concomitant]
     Indication: APLASTIC ANAEMIA
     Dates: start: 20130113
  5. LANSOPRAZOLE [Concomitant]
     Indication: PROPHYLAXIS
     Dates: start: 20121228, end: 20130131
  6. MAGMITT [Concomitant]
     Indication: CONSTIPATION
  7. BAKTAR [Concomitant]
     Indication: INFECTION PROPHYLAXIS
     Dates: start: 20130118
  8. FAMVIR /UNK/ [Concomitant]
     Indication: INFECTION PROPHYLAXIS
     Dates: start: 20130118
  9. ITRIZOLE [Concomitant]
     Indication: INFECTION PROPHYLAXIS
     Dates: start: 20130118, end: 20130715
  10. TALION [Concomitant]
     Indication: PRURIGO
     Dates: start: 20130122, end: 201305
  11. BONALON [Concomitant]
     Indication: OSTEOPOROSIS PROPHYLAXIS
     Dates: start: 20130125, end: 20130624
  12. LENDORMIN [Concomitant]
     Indication: INSOMNIA
     Dates: start: 20130118
  13. DEPAS [Concomitant]
     Indication: INSOMNIA
     Dates: start: 20130206
  14. PARIET [Concomitant]
     Indication: PROPHYLAXIS
     Dates: start: 20130201
  15. PURSENNID [Concomitant]
     Indication: CONSTIPATION

REACTIONS (5)
  - Toxic skin eruption [Recovering/Resolving]
  - Hypertension [Recovering/Resolving]
  - Arthralgia [Recovering/Resolving]
  - Arthralgia [Recovering/Resolving]
  - Oedema peripheral [Recovered/Resolved]
